FAERS Safety Report 10232867 (Version 1)
Quarter: 2014Q2

REPORT INFORMATION
  Report Type: Spontaneous
  Country: US (occurrence: None)
  Receive Date: 20140506
  Receipt Date: 20140506
  Transmission Date: 20141212
  Serious: Yes (Other)
  Sender: FDA-Public Use
  Company Number: 1257121

PATIENT
  Sex: Female

DRUGS (1)
  1. AVASTIN (BEVACIZUMAB) [Suspect]
     Indication: DIABETIC RETINAL OEDEMA
     Dates: start: 2012

REACTIONS (4)
  - Blindness [None]
  - Gastric disorder [None]
  - Blood pressure increased [None]
  - Vision blurred [None]
